FAERS Safety Report 17525549 (Version 1)
Quarter: 2020Q1

REPORT INFORMATION
  Report Type: Report from Study
  Country: CO (occurrence: CO)
  Receive Date: 20200311
  Receipt Date: 20200311
  Transmission Date: 20200409
  Serious: Yes (Life-Threatening)
  Sender: FDA-Public Use
  Company Number: CO-ROCHE-2508855

PATIENT
  Sex: Female

DRUGS (1)
  1. XELODA [Suspect]
     Active Substance: CAPECITABINE
     Indication: PRODUCT USED FOR UNKNOWN INDICATION
     Dosage: PILL, EVERY 12 HOURS, 4 ALL TOGETHER
     Route: 048

REACTIONS (4)
  - Drug intolerance [Unknown]
  - Abdominal pain upper [Unknown]
  - Gingival hypertrophy [Unknown]
  - Hepatic pain [Unknown]
